FAERS Safety Report 9305908 (Version 1)
Quarter: 2013Q2

REPORT INFORMATION
  Report Type: Spontaneous
  Country: US (occurrence: US)
  Receive Date: 20130523
  Receipt Date: 20130523
  Transmission Date: 20140414
  Serious: No
  Sender: FDA-Public Use
  Company Number: US-PFIZER INC-2013154425

PATIENT
  Age: 35 Year
  Sex: Female
  Weight: 61.22 kg

DRUGS (3)
  1. MORPHINE SULFATE [Suspect]
     Indication: FIBROMYALGIA
     Dosage: 60 MG, 3X/DAY
     Dates: start: 2005, end: 2010
  2. NORCO [Suspect]
     Indication: FIBROMYALGIA
     Dosage: 20 MG, 4X/DAY
     Dates: start: 2005, end: 2010
  3. VALIUM [Suspect]
     Indication: FIBROMYALGIA
     Dosage: 750 MG, 5X/DAY
     Route: 048
     Dates: start: 2005, end: 2010

REACTIONS (1)
  - Drug ineffective [Unknown]
